FAERS Safety Report 6113791-9 (Version None)
Quarter: 2009Q1

REPORT INFORMATION
  Report Type: 
  Country: None (occurrence: None)
  Receive Date: 20090312
  Receipt Date: 20090306
  Transmission Date: 20090719
  Serious: No
  Sender: FDA-Public Use
  Company Number: US-B.I. PHARMACEUTICALS,INC./RIDGEFIELD-2009-BP-02872BP

PATIENT
  Sex: Female

DRUGS (4)
  1. SPIRIVA [Suspect]
     Indication: ASTHMA
  2. ALBUTEROL SULFATE [Concomitant]
     Indication: DYSPNOEA
  3. SINGULAIR [Concomitant]
     Indication: DYSPNOEA
  4. PREDNISONE [Concomitant]
     Indication: DYSPNOEA

REACTIONS (1)
  - COUGH [None]
